FAERS Safety Report 6762226-1 (Version None)
Quarter: 2010Q2

REPORT INFORMATION
  Report Type: 
  Country: None (occurrence: None)
  Receive Date: 20100609
  Receipt Date: 20100526
  Transmission Date: 20101027
  Serious: Yes (Other)
  Sender: FDA-Public Use
  Company Number: PHHY2010DE34093

PATIENT
  Age: 71 Year
  Sex: Female

DRUGS (1)
  1. ZOMETA [Suspect]
     Route: 042

REACTIONS (4)
  - OSTEONECROSIS OF JAW [None]
  - OSTEOTOMY [None]
  - SEQUESTRECTOMY [None]
  - TOOTH EXTRACTION [None]
